FAERS Safety Report 11555973 (Version 1)
Quarter: 2015Q3

REPORT INFORMATION
  Report Type: Spontaneous
  Country: FR (occurrence: FR)
  Receive Date: 20150925
  Receipt Date: 20150925
  Transmission Date: 20151125
  Serious: Yes (Death, Hospitalization, Other)
  Sender: FDA-Public Use
  Company Number: FR-ASTRAZENECA-2015SE91862

PATIENT
  Age: 26778 Day
  Sex: Male

DRUGS (7)
  1. METHYLPREDNISOLONE. [Concomitant]
     Active Substance: METHYLPREDNISOLONE
     Indication: LUNG INFECTION
     Route: 042
     Dates: start: 20150131
  2. KEPPRA [Concomitant]
     Active Substance: LEVETIRACETAM
     Indication: EPILEPSY
  3. PLITICAN [Suspect]
     Active Substance: ALIZAPRIDE HYDROCHLORIDE
     Indication: NAUSEA
     Route: 042
     Dates: start: 20150127
  4. FRAGMINE [Suspect]
     Active Substance: DALTEPARIN SODIUM
     Route: 065
     Dates: start: 20150129
  5. PERFALGAN [Suspect]
     Active Substance: ACETAMINOPHEN
     Indication: ANALGESIC THERAPY
     Route: 042
     Dates: start: 20150127
  6. INEXIUM [Suspect]
     Active Substance: ESOMEPRAZOLE
     Indication: PROPHYLAXIS
     Route: 048
     Dates: start: 20150130
  7. FUNGIZONE [Suspect]
     Active Substance: AMPHOTERICIN B
     Dosage: 1 TEASPOON EVERY 8 HOURS
     Route: 048
     Dates: start: 20150126

REACTIONS (6)
  - Leukopenia [Not Recovered/Not Resolved]
  - Death [Fatal]
  - Histiocytosis haematophagic [Unknown]
  - Neutropenia [Not Recovered/Not Resolved]
  - Thrombocytopenia [Not Recovered/Not Resolved]
  - Hepatocellular injury [Unknown]

NARRATIVE: CASE EVENT DATE: 20150204
